FAERS Safety Report 8212799-7 (Version None)
Quarter: 2012Q1

REPORT INFORMATION
  Report Type: 
  Country: None (occurrence: None)
  Receive Date: 20120315
  Receipt Date: 20120223
  Transmission Date: 20120608
  Serious: Yes (Hospitalization, Other)
  Sender: FDA-Public Use
  Company Number: US-PFIZER INC-2007053384

PATIENT
  Sex: Female

DRUGS (12)
  1. COLACE [Concomitant]
     Dates: start: 20070215
  2. ATIVAN [Concomitant]
     Dosage: 0.5MG-1.0MG EVERY 8 HOURS AS NEEDED
  3. NEURONTIN [Suspect]
     Dates: end: 20070427
  4. HKI-272 [Suspect]
     Indication: BREAST CANCER METASTATIC
     Route: 048
     Dates: start: 20070215, end: 20070425
  5. LIDODERM [Concomitant]
  6. DILAUDID [Concomitant]
     Dosage: 4MG EVERY 3 HOURS AS NEEDED.
  7. MOTRIN [Concomitant]
  8. EFFEXOR [Suspect]
     Route: 048
  9. LEVAQUIN [Concomitant]
     Dates: end: 20070427
  10. METHADONE HCL [Suspect]
     Route: 048
  11. RITALIN [Suspect]
     Route: 048
     Dates: start: 20070413, end: 20070420
  12. MAGNESIUM [Concomitant]

REACTIONS (3)
  - MOVEMENT DISORDER [None]
  - DYSKINESIA [None]
  - URINARY TRACT INFECTION [None]
